FAERS Safety Report 9894516 (Version 2)
Quarter: 2014Q1

REPORT INFORMATION
  Report Type: Spontaneous
  Country: US (occurrence: US)
  Receive Date: 20140213
  Receipt Date: 20140213
  Transmission Date: 20141002
  Serious: Yes (Other)
  Sender: FDA-Public Use
  Company Number: US-GE HEALTHCARE MEDICAL DIAGNOSTICS-OSCN-PR-1010S-0262

PATIENT
  Age: 50 Year
  Sex: Male
  Weight: 122.58 kg

DRUGS (12)
  1. OMNISCAN [Suspect]
     Indication: PYREXIA
     Route: 042
     Dates: start: 20041015, end: 20041015
  2. OMNISCAN [Suspect]
     Indication: CHILLS
  3. OMNISCAN [Suspect]
     Indication: PAIN IN EXTREMITY
  4. EPOGEN [Concomitant]
  5. VICODIN [Concomitant]
  6. DILAUDID [Concomitant]
  7. COUMADIN [Concomitant]
  8. SENSIPAR [Concomitant]
  9. METOPROLOL [Concomitant]
  10. VISIPAQUE [Concomitant]
  11. ISOVUE [Concomitant]
  12. OMNIPAQUE [Concomitant]

REACTIONS (1)
  - Nephrogenic systemic fibrosis [Not Recovered/Not Resolved]
